FAERS Safety Report 20105390 (Version 2)
Quarter: 2021Q4

REPORT INFORMATION
  Report Type: Report from Study
  Country: US (occurrence: US)
  Receive Date: 20211124
  Receipt Date: 20211209
  Transmission Date: 20220303
  Serious: Yes (Hospitalization, Other)
  Sender: FDA-Public Use
  Company Number: US-BRISTOL-MYERS SQUIBB COMPANY-BMS-2021-122648

PATIENT
  Age: 40 Year
  Sex: Female
  Weight: 62.7 kg

DRUGS (7)
  1. ABATACEPT [Suspect]
     Active Substance: ABATACEPT
     Indication: Glucose tolerance impaired
     Dosage: 650 MILLIGRAM, QMO
     Route: 042
     Dates: start: 20181030, end: 20190924
  2. PLACEBO [Suspect]
     Active Substance: UNSPECIFIED INGREDIENT
     Indication: Glucose tolerance impaired
     Dosage: 650 MILLIGRAM, QMO
     Route: 042
     Dates: start: 20181030, end: 20190924
  3. ABATACEPT [Suspect]
     Active Substance: ABATACEPT
     Indication: Diabetes mellitus
  4. PLACEBO [Suspect]
     Active Substance: UNSPECIFIED INGREDIENT
     Indication: Diabetes mellitus
  5. LEXAPRO [Concomitant]
     Active Substance: ESCITALOPRAM OXALATE
     Indication: Product used for unknown indication
     Dosage: UNK
     Route: 065
     Dates: start: 201712
  6. NANOCELLE B12 [Concomitant]
     Indication: Product used for unknown indication
     Dosage: UNK
     Route: 065
     Dates: start: 20201015
  7. SWISSE ULTIVITE WOMEN^S 65+ MULTIVITAMIN, MIN [Concomitant]
     Indication: Product used for unknown indication
     Dosage: UNK
     Route: 065
     Dates: start: 20210501

REACTIONS (1)
  - Invasive ductal breast carcinoma [Unknown]

NARRATIVE: CASE EVENT DATE: 20211025
